FAERS Safety Report 9782041 (Version 1)
Quarter: 2013Q4

REPORT INFORMATION
  Report Type: Spontaneous
  Country: BR (occurrence: BR)
  Receive Date: 20131226
  Receipt Date: 20131226
  Transmission Date: 20140711
  Serious: No
  Sender: FDA-Public Use
  Company Number: BR-JNJFOC-20131210173

PATIENT
  Age: 1 Month
  Sex: Female
  Weight: 5 kg

DRUGS (2)
  1. MYLICON [Suspect]
     Indication: ABDOMINAL PAIN
     Route: 065
     Dates: start: 201311
  2. MYLICON [Suspect]
     Indication: ABDOMINAL PAIN
     Route: 065
     Dates: start: 201311

REACTIONS (2)
  - Blister [Recovering/Resolving]
  - Condition aggravated [Unknown]
